FAERS Safety Report 18638645 (Version 3)
Quarter: 2021Q2

REPORT INFORMATION
  Report Type: Spontaneous
  Country: US (occurrence: US)
  Receive Date: 20201219
  Receipt Date: 20210421
  Transmission Date: 20210717
  Serious: Yes (Other)
  Sender: FDA-Public Use
  Company Number: US-DRREDDYS-USA/USA/20/0130089

PATIENT
  Age: 55 Year
  Sex: Male

DRUGS (13)
  1. TACROLIMUS. [Suspect]
     Active Substance: TACROLIMUS
     Dosage: INCREASED TACROLIMUS GOAL OF 8?10NG/ML
     Dates: start: 201604
  2. PREDNISONE. [Concomitant]
     Active Substance: PREDNISONE
     Dosage: DOSE WAS INCREASED
     Dates: start: 2018
  3. MYCOPHENOLATE MOFETIL. [Concomitant]
     Active Substance: MYCOPHENOLATE MOFETIL
     Dates: start: 201604, end: 2018
  4. EVEROLIMUS. [Concomitant]
     Active Substance: EVEROLIMUS
     Dosage: 12?HOUR GOAL TROUGH CONCENTRATION OF 8 NG/ML
     Dates: start: 201807
  5. EVEROLIMUS. [Concomitant]
     Active Substance: EVEROLIMUS
     Indication: IMMUNOSUPPRESSANT DRUG THERAPY
     Dosage: 12?HOUR GOAL TROUGH CONCENTRATION OF 5?8 NG/ML
     Dates: start: 201511, end: 201604
  6. EVEROLIMUS. [Concomitant]
     Active Substance: EVEROLIMUS
     Dosage: GOAL 12?HOUR TROUGH CONCENTRATION OF 5?7 NG/ML
     Dates: start: 2018
  7. PREDNISONE. [Concomitant]
     Active Substance: PREDNISONE
     Indication: IMMUNOSUPPRESSANT DRUG THERAPY
     Dates: start: 201510
  8. TACROLIMUS. [Suspect]
     Active Substance: TACROLIMUS
     Dosage: TROUGH GOAL TO 3?5 NG/ML
     Dates: start: 201511, end: 201604
  9. TACROLIMUS. [Suspect]
     Active Substance: TACROLIMUS
     Dosage: 12?HOUR GOAL TROUGH CONCENTRATION OF 8 NG/ML
     Dates: start: 201807
  10. PREDNISONE. [Concomitant]
     Active Substance: PREDNISONE
     Dosage: REQUIRED CONTINUED STEROIDS (PREDNISONE 15?20MG)
     Dates: start: 2016
  11. MYCOPHENOLATE MOFETIL. [Concomitant]
     Active Substance: MYCOPHENOLATE MOFETIL
     Indication: IMMUNOSUPPRESSANT DRUG THERAPY
     Dates: start: 201510, end: 201511
  12. TACROLIMUS. [Suspect]
     Active Substance: TACROLIMUS
     Indication: IMMUNOSUPPRESSANT DRUG THERAPY
     Dosage: 12? HOUR GOAL TROUGH CONCENTRATION OF 5?8NG/ML
     Dates: start: 201510, end: 201511
  13. TACROLIMUS. [Suspect]
     Active Substance: TACROLIMUS
     Dosage: GOAL 12?HOUR TROUGH CONCENTRATION OF 6?8 NG/ML
     Dates: start: 2018

REACTIONS (4)
  - Transplant rejection [Unknown]
  - Diarrhoea [Recovered/Resolved]
  - Chronic kidney disease [Not Recovered/Not Resolved]
  - Acute kidney injury [Recovered/Resolved]

NARRATIVE: CASE EVENT DATE: 2019
